FAERS Safety Report 6855741-3 (Version None)
Quarter: 2010Q3

REPORT INFORMATION
  Report Type: 
  Country: None (occurrence: None)
  Receive Date: 20100719
  Receipt Date: 20091008
  Transmission Date: 20110219
  Serious: No
  Sender: FDA-Public Use
  Company Number: US-KINGPHARMUSA00001-K200901250

PATIENT
  Age: 56 Year
  Sex: Female
  Weight: 53.061 kg

DRUGS (2)
  1. LEVOXYL [Suspect]
     Indication: HYPOTHYROIDISM
     Dosage: 100 MCG, QD
     Route: 048
     Dates: start: 20090924, end: 20091008
  2. CLONAZEPAM [Concomitant]
     Indication: STRESS AT WORK
     Dosage: 0.5 MG, PRN
     Dates: start: 20080101

REACTIONS (5)
  - ANXIETY [None]
  - DERMATITIS ACNEIFORM [None]
  - HEART RATE INCREASED [None]
  - SLEEP DISORDER [None]
  - TREMOR [None]
